FAERS Safety Report 13256972 (Version 1)
Quarter: 2017Q1

REPORT INFORMATION
  Report Type: Spontaneous
  Country: CA (occurrence: CA)
  Receive Date: 20170221
  Receipt Date: 20170221
  Transmission Date: 20170428
  Serious: Yes (Hospitalization)
  Sender: FDA-Public Use
  Company Number: PHHY2017CA023914

PATIENT
  Age: 21 Year
  Sex: Female

DRUGS (8)
  1. SYNTHROID [Suspect]
     Active Substance: LEVOTHYROXINE SODIUM
     Indication: THYROIDITIS
     Route: 065
  2. SOMATULINE [Suspect]
     Active Substance: LANREOTIDE ACETATE
     Dosage: 90 MG, QMO (1 IN EVERY 28 DAYS)
     Route: 058
  3. SOMATULINE [Suspect]
     Active Substance: LANREOTIDE ACETATE
     Indication: PRODUCT USED FOR UNKNOWN INDICATION
     Dosage: 60 MG, QMO (1 EVERY 28 DAYS)
     Route: 058
  4. SOMATULINE [Suspect]
     Active Substance: LANREOTIDE ACETATE
     Dosage: UNK, QMO(1 IN EVERY 28 DAYS)
     Route: 058
  5. LORAZEPAM. [Concomitant]
     Active Substance: LORAZEPAM
     Indication: PRODUCT USED FOR UNKNOWN INDICATION
     Route: 065
  6. IODINE. [Suspect]
     Active Substance: IODINE
     Indication: COMPUTERISED TOMOGRAM
     Route: 005
  7. SANDOSTATIN [Suspect]
     Active Substance: OCTREOTIDE ACETATE
     Indication: PRODUCT USED FOR UNKNOWN INDICATION
     Dosage: 250 UG, TID, 3 EVERY 1 DAY
     Route: 058
  8. SOMATULINE [Suspect]
     Active Substance: LANREOTIDE ACETATE
     Dosage: 60 MG, QMO (1 IN EVERY 28 DAYS)
     Route: 058

REACTIONS (6)
  - Thyroiditis [Unknown]
  - Vomiting [Unknown]
  - Abdominal pain [Unknown]
  - Chest pain [Unknown]
  - Diarrhoea [Unknown]
  - Heart rate increased [Unknown]
